FAERS Safety Report 13638214 (Version 1)
Quarter: 2017Q2

REPORT INFORMATION
  Report Type: Spontaneous
  Country: US (occurrence: US)
  Receive Date: 20170609
  Receipt Date: 20170609
  Transmission Date: 20170830
  Serious: Yes (Hospitalization)
  Sender: FDA-Public Use
  Company Number: US-JNJFOC-20170605560

PATIENT
  Sex: Male

DRUGS (1)
  1. XARELTO [Suspect]
     Active Substance: RIVAROXABAN
     Indication: PRODUCT USED FOR UNKNOWN INDICATION
     Route: 048
     Dates: start: 2016

REACTIONS (6)
  - Epistaxis [Unknown]
  - Rectal haemorrhage [Unknown]
  - Penile haemorrhage [Unknown]
  - Mouth haemorrhage [Unknown]
  - Injury [Unknown]
  - Gastrointestinal haemorrhage [Unknown]
